FAERS Safety Report 16093253 (Version 1)
Quarter: 2019Q1

REPORT INFORMATION
  Report Type: Report from Study
  Country: IT (occurrence: IT)
  Receive Date: 20190320
  Receipt Date: 20190320
  Transmission Date: 20190418
  Serious: Yes (Other)
  Sender: FDA-Public Use
  Company Number: IT-PFIZER INC-2019114774

PATIENT
  Age: 42 Year
  Sex: Male

DRUGS (3)
  1. NORVASC [Suspect]
     Active Substance: AMLODIPINE BESYLATE
     Indication: HYPERTENSION
     Dosage: 10 MG, 1X/DAY
     Route: 048
  2. ZYLORIC [Concomitant]
     Active Substance: ALLOPURINOL
     Dosage: UNK
  3. KARVEA [Suspect]
     Active Substance: IRBESARTAN
     Indication: HYPERTENSION
     Dosage: 300 MG, 1X/DAY
     Route: 048

REACTIONS (3)
  - Blood pressure increased [Recovering/Resolving]
  - Drug ineffective [Recovering/Resolving]
  - Headache [Recovering/Resolving]

NARRATIVE: CASE EVENT DATE: 20190211
